FAERS Safety Report 25476120 (Version 2)
Quarter: 2025Q3

REPORT INFORMATION
  Report Type: Spontaneous
  Country: AU (occurrence: AU)
  Receive Date: 20250625
  Receipt Date: 20250703
  Transmission Date: 20251020
  Serious: Yes (Other)
  Sender: SANOFI AVENTIS
  Company Number: AU-SA-2025SA174876

PATIENT
  Age: 9 Month
  Sex: Male

DRUGS (10)
  1. ALEMTUZUMAB [Suspect]
     Active Substance: ALEMTUZUMAB
     Indication: Immunomodulatory therapy
  2. FLUDARABINE PHOSPHATE [Suspect]
     Active Substance: FLUDARABINE PHOSPHATE
     Indication: Lysosomal acid lipase deficiency
  3. FLUDARABINE PHOSPHATE [Suspect]
     Active Substance: FLUDARABINE PHOSPHATE
     Indication: Haemophagocytic lymphohistiocytosis
  4. FLUDARABINE PHOSPHATE [Suspect]
     Active Substance: FLUDARABINE PHOSPHATE
     Indication: Allogenic stem cell transplantation
  5. THIOTEPA [Suspect]
     Active Substance: THIOTEPA
     Indication: Lysosomal acid lipase deficiency
  6. THIOTEPA [Suspect]
     Active Substance: THIOTEPA
     Indication: Haemophagocytic lymphohistiocytosis
  7. THIOTEPA [Suspect]
     Active Substance: THIOTEPA
     Indication: Allogenic stem cell transplantation
  8. TREOSULFAN [Suspect]
     Active Substance: TREOSULFAN
     Indication: Lysosomal acid lipase deficiency
  9. TREOSULFAN [Suspect]
     Active Substance: TREOSULFAN
     Indication: Haemophagocytic lymphohistiocytosis
  10. TREOSULFAN [Suspect]
     Active Substance: TREOSULFAN
     Indication: Allogenic stem cell transplantation

REACTIONS (3)
  - Hepatosplenomegaly [Recovered/Resolved]
  - Staphylococcal sepsis [Unknown]
  - Off label use [Unknown]
